FAERS Safety Report 9671848 (Version 2)
Quarter: 2013Q4

REPORT INFORMATION
  Report Type: Spontaneous
  Country: JP (occurrence: JP)
  Receive Date: 20131106
  Receipt Date: 20131217
  Transmission Date: 20140711
  Serious: Yes (Hospitalization)
  Sender: FDA-Public Use
  Company Number: JP-ROCHE-1295371

PATIENT
  Age: 45 Year
  Sex: Male
  Weight: 78 kg

DRUGS (7)
  1. PEGASYS [Suspect]
     Indication: CHRONIC HEPATITIS C
     Route: 058
     Dates: start: 20130517, end: 20130706
  2. PEGASYS [Suspect]
     Indication: CHRONIC HEPATITIS C
     Route: 058
     Dates: start: 20130712, end: 20130927
  3. COPEGUS [Suspect]
     Indication: CHRONIC HEPATITIS C
     Route: 048
     Dates: start: 20130517, end: 20130927
  4. CARBAMAZEPINE [Concomitant]
     Route: 048
  5. ABILIFY [Concomitant]
     Dosage: 6MG IN MORNING, 6MG IN DAYTIME, AND 12MG IN EVENING
     Route: 048
  6. ABILIFY [Concomitant]
     Dosage: ONE IN EVENING
     Route: 048
  7. TASMOLIN [Concomitant]
     Route: 048

REACTIONS (3)
  - Eosinophilia [Not Recovered/Not Resolved]
  - Dermatitis exfoliative [Unknown]
  - Dermal cyst [Unknown]
